FAERS Safety Report 5912919-0 (Version None)
Quarter: 2008Q4

REPORT INFORMATION
  Report Type: 
  Country: None (occurrence: None)
  Receive Date: 20081008
  Receipt Date: 20081001
  Transmission Date: 20090506
  Serious: Yes (Hospitalization, Other)
  Sender: FDA-Public Use
  Company Number: JP-PFIZER INC-2008073363

PATIENT
  Sex: Female
  Weight: 50 kg

DRUGS (1)
  1. AZULFIDINE [Suspect]
     Indication: RHEUMATOID ARTHRITIS
     Dosage: DAILY DOSE:1000MG
     Route: 048
     Dates: start: 20080716, end: 20080813

REACTIONS (2)
  - BONE PAIN [None]
  - PYREXIA [None]
